FAERS Safety Report 5118646-4 (Version None)
Quarter: 2006Q3

REPORT INFORMATION
  Report Type: 
  Country: None (occurrence: None)
  Receive Date: 20060927
  Receipt Date: 20060918
  Transmission Date: 20061208
  Serious: Yes (Hospitalization)
  Sender: FDA-Public Use
  Company Number: 2006BI012449

PATIENT
  Age: 69 Year
  Sex: Female

DRUGS (10)
  1. AVONEX [Suspect]
     Indication: MULTIPLE SCLEROSIS
     Dosage: 30 UG;QW;IM
     Route: 030
  2. NAPROXEN [Concomitant]
  3. VICODIN [Concomitant]
  4. NEXIUM [Concomitant]
  5. TEMAZEPAM [Concomitant]
  6. CLONAZEPAM [Concomitant]
  7. GABAPENTIN [Concomitant]
  8. ZELNORM [Concomitant]
  9. LIPITOR [Concomitant]
  10. LORATADINE [Concomitant]

REACTIONS (7)
  - BLOOD CHLORIDE INCREASED [None]
  - BRONCHIAL HYPERREACTIVITY [None]
  - BRONCHITIS [None]
  - HAEMATOCRIT DECREASED [None]
  - HAEMOGLOBIN DECREASED [None]
  - PCO2 DECREASED [None]
  - WHITE BLOOD CELL COUNT INCREASED [None]
